FAERS Safety Report 6175987-X (Version None)
Quarter: 2009Q2

REPORT INFORMATION
  Report Type: 
  Country: None (occurrence: None)
  Receive Date: 20090501
  Receipt Date: 20090429
  Transmission Date: 20091009
  Serious: Yes (Death)
  Sender: FDA-Public Use
  Company Number: US-ASTRAZENECA-2009UW10655

PATIENT
  Age: 75 Year
  Sex: Male

DRUGS (4)
  1. CASODEX [Suspect]
     Route: 048
  2. PULMICORT-100 [Suspect]
     Route: 055
  3. PROZAC [Concomitant]
  4. PREDNISONE [Concomitant]

REACTIONS (2)
  - NEOPLASM MALIGNANT [None]
  - PNEUMONIA [None]
